FAERS Safety Report 7651638-X (Version None)
Quarter: 2011Q3

REPORT INFORMATION
  Report Type: 
  Country: None (occurrence: None)
  Receive Date: 20110802
  Receipt Date: 20110720
  Transmission Date: 20111222
  Serious: Yes (Other)
  Sender: FDA-Public Use
  Company Number: US-BAYER-2011-063786

PATIENT
  Sex: Male
  Weight: 88 kg

DRUGS (1)
  1. NEO-SYNEPHRINE (UNSPECIFIED FORMULATION) [Suspect]
     Indication: NASAL CONGESTION
     Dosage: USED THE PRODUCT SEVERAL TIMES A DAY
     Route: 045
     Dates: start: 19801001, end: 19801001

REACTIONS (2)
  - ANOSMIA [None]
  - BALANCE DISORDER [None]
